FAERS Safety Report 4785077-6 (Version None)
Quarter: 2005Q3

REPORT INFORMATION
  Report Type: 
  Country: None (occurrence: None)
  Receive Date: 20050930
  Receipt Date: 20050920
  Transmission Date: 20060218
  Serious: Yes (Hospitalization)
  Sender: FDA-Public Use
  Company Number: IT-JNJFOC-20050904750

PATIENT
  Sex: Male

DRUGS (5)
  1. SERENASE [Suspect]
     Indication: DEPRESSION
     Dosage: ADMINISTERED AS DROPS
     Route: 048
  2. ZOLOFT [Suspect]
     Indication: DEPRESSION
     Dosage: DOSE = 1 UNIT
     Route: 048
  3. TRIATEC [Concomitant]
     Route: 065
  4. MODURETIC 5-50 [Concomitant]
     Route: 065
  5. MODURETIC 5-50 [Concomitant]
     Dosage: AMILORIDE + HYDROCHLOROTHIAZIDE -  5MG + 50MG
     Route: 065

REACTIONS (3)
  - BLOOD CHLORIDE DECREASED [None]
  - BLOOD OSMOLARITY DECREASED [None]
  - HYPONATRAEMIA [None]
